FAERS Safety Report 26015765 (Version 1)
Quarter: 2025Q4

REPORT INFORMATION
  Report Type: Report from Study
  Country: CA (occurrence: CA)
  Receive Date: 20251109
  Receipt Date: 20251109
  Transmission Date: 20260119
  Serious: Yes (Hospitalization, Other)
  Sender: ABBVIE
  Company Number: CA-ABBVIE-6534674

PATIENT
  Age: 69 Year
  Sex: Male

DRUGS (2)
  1. SKYRIZI [Suspect]
     Active Substance: RISANKIZUMAB-RZAA
     Indication: Crohn^s disease
     Dosage: FORM STRENGTH: 360MG/2.4ML?INJECT 360 MILLIGRAM SUBCUTANEOUSLY WITH THE ON BODY INJECTOR AT WEEK ...
     Route: 058
     Dates: start: 20250325
  2. SKYRIZI [Suspect]
     Active Substance: RISANKIZUMAB-RZAA
     Indication: Psoriasis

REACTIONS (3)
  - Intestinal obstruction [Recovering/Resolving]
  - Full blood count increased [Recovering/Resolving]
  - Deafness [Unknown]

NARRATIVE: CASE EVENT DATE: 20250101
